FAERS Safety Report 19889707 (Version 1)
Quarter: 2021Q3

REPORT INFORMATION
  Report Type: Spontaneous
  Country: US (occurrence: US)
  Receive Date: 20210928
  Receipt Date: 20210928
  Transmission Date: 20211014
  Serious: Yes (Disabling)
  Sender: FDA-Public Use
  Company Number: None

PATIENT
  Age: 62 Year
  Sex: Female
  Weight: 39.6 kg

DRUGS (3)
  1. PROLIA [Suspect]
     Active Substance: DENOSUMAB
     Indication: OSTEOPOROSIS
     Dosage: ?          OTHER FREQUENCY:2 X PER YEAR;?
     Route: 030
     Dates: start: 20190716, end: 20210715
  2. MAXALT (GENERIC) [Concomitant]
  3. NALTREXONE [Concomitant]
     Active Substance: NALTREXONE

REACTIONS (2)
  - Pain in extremity [None]
  - Bone pain [None]
